FAERS Safety Report 7821120-5 (Version None)
Quarter: 2011Q4

REPORT INFORMATION
  Report Type: 
  Country: None (occurrence: None)
  Receive Date: 20111018
  Receipt Date: 20111007
  Transmission Date: 20120403
  Serious: Yes (Hospitalization)
  Sender: FDA-Public Use
  Company Number: JP-PFIZER INC-2011239414

PATIENT
  Age: 62 Year
  Sex: Female

DRUGS (21)
  1. CYCLOPHOSPHAMIDE [Suspect]
     Dosage: INTRASPINAL VCAP ADMINISTRATION
     Dates: start: 20110319
  2. PREDNISOLONE [Suspect]
     Dosage: INTRASPINAL VCAP ADMINISTRATION
     Dates: start: 20110319
  3. ETOPOSIDE [Suspect]
     Indication: ADULT T-CELL LYMPHOMA/LEUKAEMIA
     Dosage: 100 MG/M2 X 1/4WEEK
     Route: 041
     Dates: start: 20110305
  4. PREDNISOLONE [Suspect]
     Indication: ADULT T-CELL LYMPHOMA/LEUKAEMIA
     Dosage: 40 MG/M2 X 1/4WEEK
     Route: 048
     Dates: start: 20110214
  5. SULFAMETHOXAZOLE [Suspect]
     Indication: PNEUMOCYSTIS JIROVECI PNEUMONIA
     Dosage: 1 G, 1X/DAY
     Route: 048
  6. KW-0761 [Suspect]
     Indication: ADULT T-CELL LYMPHOMA/LEUKAEMIA
     Dosage: 1 MG/KG, UNK
     Route: 041
     Dates: start: 20110215, end: 20110701
  7. FLUCONAZOLE [Suspect]
     Indication: FUNGAL INFECTION
     Dosage: 100 MG, 1X/DAY
     Route: 048
  8. ALPRAZOLAM [Suspect]
     Indication: ANXIETY
     Dosage: 0.4 MG, 2X/DAY
     Route: 048
  9. FILDESIN [Suspect]
     Indication: ADULT T-CELL LYMPHOMA/LEUKAEMIA
     Dosage: 2.4 MG/M2 X 1/4WEEK
     Route: 042
     Dates: start: 20110214
  10. ALENDRONATE SODIUM [Suspect]
     Indication: OSTEOPOROSIS
     Dosage: 35 MG, WEEKLY
     Route: 048
  11. CYMERIN [Suspect]
     Indication: ADULT T-CELL LYMPHOMA/LEUKAEMIA
     Dosage: 60 MG/M2 X 1/4WEEK
     Route: 041
     Dates: start: 20110221
  12. CARBOPLATIN [Suspect]
     Indication: ADULT T-CELL LYMPHOMA/LEUKAEMIA
     Dosage: 250 MG/M2 X 1/4WEEK
     Route: 041
     Dates: start: 20110305
  13. DOXORUBICIN HCL [Suspect]
     Indication: ADULT T-CELL LYMPHOMA/LEUKAEMIA
     Dosage: 40 MG/M2 X 1/4WEEK
     Route: 041
     Dates: start: 20110214
  14. CYCLOPHOSPHAMIDE [Suspect]
     Indication: ADULT T-CELL LYMPHOMA/LEUKAEMIA
     Dosage: 350 MG/M2 X 1/4WEEK
     Route: 041
     Dates: start: 20110214
  15. ONCOVIN [Suspect]
     Indication: ADULT T-CELL LYMPHOMA/LEUKAEMIA
     Dosage: 1 MG/M2 X 1/4WEEK
     Route: 042
     Dates: start: 20110214
  16. ONCOVIN [Suspect]
     Dosage: INTRASPINAL VCAP ADMINISTRATION
     Dates: start: 20110319
  17. ATENOLOL [Suspect]
     Indication: HYPERTENSION
     Dosage: 50 MG, 1X/DAY
     Route: 048
     Dates: start: 20110722
  18. LOXOPROFEN [Suspect]
     Indication: PYREXIA
     Dosage: 40 MG, UNK
     Route: 048
     Dates: start: 20110805
  19. RABEPRAZOLE SODIUM [Suspect]
     Indication: PROPHYLAXIS AGAINST GASTROINTESTINAL ULCER
     Dosage: 10 MG, 1X/DAY
     Route: 048
  20. FILDESIN [Suspect]
     Dosage: INTRASPINAL VCAP ADMINISTRATION
     Dates: start: 20110319
  21. FUROSEMIDE [Suspect]
     Indication: OEDEMA
     Dosage: 40 MG, 1X/DAY
     Route: 048
     Dates: start: 20110804

REACTIONS (17)
  - LACERATION [None]
  - STAPHYLOCOCCUS TEST POSITIVE [None]
  - PLATELET COUNT DECREASED [None]
  - OEDEMA GENITAL [None]
  - DRY SKIN [None]
  - RASH GENERALISED [None]
  - SCAB [None]
  - OEDEMA PERIPHERAL [None]
  - ERYTHEMA [None]
  - PSEUDOMONAS TEST POSITIVE [None]
  - RASH PAPULAR [None]
  - SKIN EXFOLIATION [None]
  - SKIN EROSION [None]
  - SKIN ULCER [None]
  - FOLLICULITIS [None]
  - PAIN [None]
  - ESCHERICHIA TEST POSITIVE [None]
